FAERS Safety Report 5922020-8 (Version None)
Quarter: 2008Q4

REPORT INFORMATION
  Report Type: 
  Country: None (occurrence: None)
  Receive Date: 20081017
  Receipt Date: 20081015
  Transmission Date: 20090506
  Serious: Yes (Other)
  Sender: FDA-Public Use
  Company Number: A0752002A

PATIENT
  Age: 61 Year
  Sex: Female

DRUGS (6)
  1. VALTREX [Suspect]
     Indication: HERPES ZOSTER
     Dosage: 1G THREE TIMES PER DAY
     Route: 048
     Dates: start: 20081008
  2. WELLBUTRIN SR [Concomitant]
  3. AMBIEN [Concomitant]
  4. ALBUTEROL [Concomitant]
  5. ADVAIR DISKUS 100/50 [Concomitant]
  6. CLONAZEPAM [Concomitant]

REACTIONS (3)
  - APHASIA [None]
  - BALANCE DISORDER [None]
  - DIZZINESS [None]
